FAERS Safety Report 6706293-X (Version None)
Quarter: 2010Q2

REPORT INFORMATION
  Report Type: 
  Country: None (occurrence: None)
  Receive Date: 20100503
  Receipt Date: 20100419
  Transmission Date: 20101027
  Serious: Yes (Other)
  Sender: FDA-Public Use
  Company Number: US-PFIZER INC-2010049577

PATIENT
  Sex: Male
  Weight: 74.83 kg

DRUGS (4)
  1. NEURONTIN [Suspect]
     Indication: PERIPHERAL NERVE INJURY
     Dosage: 300 MG, 3X/DAY
     Dates: start: 20030101
  2. NEURONTIN [Suspect]
     Dosage: 600 MG, 4X/DAY
  3. XANAX [Concomitant]
     Dosage: UNK
  4. LORAZEPAM [Concomitant]
     Dosage: UNK

REACTIONS (4)
  - FEELING ABNORMAL [None]
  - MALAISE [None]
  - MENTAL DISORDER [None]
  - PANIC ATTACK [None]
